FAERS Safety Report 9438244 (Version 1)
Quarter: 2013Q3

REPORT INFORMATION
  Report Type: Spontaneous
  Country: US (occurrence: None)
  Receive Date: 20130802
  Receipt Date: 20130802
  Transmission Date: 20140515
  Serious: Yes (Hospitalization, Other)
  Sender: FDA-Public Use
  Company Number: None

PATIENT
  Age: 59 Year
  Sex: Male

DRUGS (5)
  1. INCIVEK 375MG VERTEX [Suspect]
     Indication: HEPATITIS C VIRUS TEST POSITIVE
     Dosage: 750MG TID PO
     Route: 048
     Dates: start: 201306
  2. PEGASYS [Concomitant]
  3. RIBASPHERE [Concomitant]
  4. PRILOSEC [Concomitant]
  5. ADAVERT [Concomitant]

REACTIONS (2)
  - Rash [None]
  - Blister [None]
